FAERS Safety Report 18199766 (Version 1)
Quarter: 2020Q3

REPORT INFORMATION
  Report Type: Report from Study
  Country: JP (occurrence: JP)
  Receive Date: 20200826
  Receipt Date: 20200826
  Transmission Date: 20201103
  Serious: Yes (Death, Other)
  Sender: FDA-Public Use
  Company Number: JP-BRISTOL-MYERS SQUIBB COMPANY-BMS-2018-125403

PATIENT
  Age: 75 Year
  Sex: Male
  Weight: 46.9 kg

DRUGS (4)
  1. BAKTAR [Suspect]
     Active Substance: SULFAMETHOXAZOLE\TRIMETHOPRIM
     Indication: ANTIFUNGAL PROPHYLAXIS
     Dosage: 1 DOSAGE FORM, QD
     Route: 048
  2. LEVOFLOXACIN HEMIHYDRATE [Suspect]
     Active Substance: LEVOFLOXACIN
     Indication: GASTROINTESTINAL DISORDER PROPHYLAXIS
     Dosage: 250 MILLIGRAM, QD
     Route: 048
  3. NIVOLUMAB [Suspect]
     Active Substance: NIVOLUMAB
     Indication: HODGKIN^S DISEASE
     Dosage: 240 MILLIGRAM
     Route: 041
     Dates: start: 20181221, end: 20190319
  4. CEFEPIME DIHYDROCHLORIDE MONOHYDRATE [Suspect]
     Active Substance: CEFEPIME HYDROCHLORIDE
     Indication: PRODUCT USED FOR UNKNOWN INDICATION
     Dosage: 2 GRAM, Q12H
     Route: 042
     Dates: start: 20190322, end: 20190328

REACTIONS (1)
  - Death [Fatal]
